FAERS Safety Report 10589155 (Version 2)
Quarter: 2014Q4

REPORT INFORMATION
  Report Type: Spontaneous
  Country: US (occurrence: US)
  Receive Date: 20141118
  Receipt Date: 20141118
  Transmission Date: 20150529
  Serious: Yes (Death, Hospitalization)
  Sender: FDA-Public Use
  Company Number: US-BEH-2013035674

PATIENT
  Age: 55 Year
  Sex: Male
  Weight: 45 kg

DRUGS (2)
  1. HIZENTRA [Suspect]
     Active Substance: HUMAN IMMUNOGLOBULIN G
     Dosage: ON OR ABOUT 11-APR-2013
     Route: 058
  2. HIZENTRA [Suspect]
     Active Substance: HUMAN IMMUNOGLOBULIN G
     Indication: IMMUNODEFICIENCY COMMON VARIABLE
     Dosage: ??-APR-2012
     Route: 058

REACTIONS (6)
  - Pneumonia [Unknown]
  - Nutritional condition abnormal [Fatal]
  - Liver injury [Fatal]
  - Malaise [Fatal]
  - Gastric neoplasm [Unknown]
  - Gastrectomy [Unknown]

NARRATIVE: CASE EVENT DATE: 201204
